FAERS Safety Report 4876117-4 (Version None)
Quarter: 2006Q1

REPORT INFORMATION
  Report Type: 
  Country: None (occurrence: None)
  Receive Date: 20060106
  Receipt Date: 20060106
  Transmission Date: 20060701
  Serious: Yes (Other)
  Sender: FDA-Public Use
  Company Number: None

PATIENT
  Age: 45 Year
  Sex: Male
  Weight: 87.5442 kg

DRUGS (1)
  1. VERAPAMIL [Suspect]
     Indication: HYPERTENSION
     Dates: start: 20040401, end: 20040501

REACTIONS (2)
  - SEXUAL DYSFUNCTION [None]
  - THERAPEUTIC RESPONSE UNEXPECTED WITH DRUG SUBSTITUTION [None]
